FAERS Safety Report 15131570 (Version 1)
Quarter: 2018Q3

REPORT INFORMATION
  Report Type: Spontaneous
  Country: US (occurrence: US)
  Receive Date: 20180711
  Receipt Date: 20180711
  Transmission Date: 20181010
  Serious: No
  Sender: FDA-Public Use
  Company Number: US-BEH-2018092617

PATIENT
  Sex: Male
  Weight: 90.7 kg

DRUGS (16)
  1. DIPHENHYDRAMINE. [Concomitant]
     Active Substance: DIPHENHYDRAMINE
  2. ALPRAZOLAM. [Concomitant]
     Active Substance: ALPRAZOLAM
  3. HIZENTRA [Suspect]
     Active Substance: HUMAN IMMUNOGLOBULIN G
     Indication: HYPOGAMMAGLOBULINAEMIA
     Dosage: 8 G, QW
     Route: 058
     Dates: start: 20160711
  4. LEVOTHYROXINE. [Concomitant]
     Active Substance: LEVOTHYROXINE
  5. ACETAMINOPHEN. [Concomitant]
     Active Substance: ACETAMINOPHEN
  6. LISINOPRIL AND HYDROCHLOROTHIAZIDE [Concomitant]
     Active Substance: HYDROCHLOROTHIAZIDE\LISINOPRIL
  7. EPINEPHRINE. [Concomitant]
     Active Substance: EPINEPHRINE
  8. NORCO [Concomitant]
     Active Substance: ACETAMINOPHEN\HYDROCODONE BITARTRATE
  9. ETODOLAC. [Concomitant]
     Active Substance: ETODOLAC
  10. VENTOLIN [Concomitant]
     Active Substance: ALBUTEROL SULFATE
  11. AMLODIPINE BESYLATE. [Concomitant]
     Active Substance: AMLODIPINE BESYLATE
  12. HIZENTRA [Suspect]
     Active Substance: HUMAN IMMUNOGLOBULIN G
     Dosage: 8 G, TOT
     Route: 058
  13. VALACYCLOVIR [Concomitant]
     Active Substance: VALACYCLOVIR HYDROCHLORIDE
  14. TRAMADOL. [Concomitant]
     Active Substance: TRAMADOL
  15. LIDOCAINE. [Concomitant]
     Active Substance: LIDOCAINE
  16. BUPRENORPHINE. [Concomitant]
     Active Substance: BUPRENORPHINE

REACTIONS (1)
  - Dysphonia [Unknown]
